FAERS Safety Report 19651606 (Version 1)
Quarter: 2021Q3

REPORT INFORMATION
  Report Type: Spontaneous
  Country: US (occurrence: US)
  Receive Date: 20210802
  Receipt Date: 20210802
  Transmission Date: 20211014
  Serious: Yes (Hospitalization)
  Sender: FDA-Public Use
  Company Number: None

PATIENT
  Age: 71 Year
  Sex: Female

DRUGS (1)
  1. PROLIA [Suspect]
     Active Substance: DENOSUMAB
     Indication: OSTEOPOROSIS
     Dosage: ?          OTHER FREQUENCY:Q 6 MONTH;?
     Route: 058
     Dates: start: 20200813

REACTIONS (3)
  - Gastric ulcer [None]
  - Osteonecrosis [None]
  - Fall [None]

NARRATIVE: CASE EVENT DATE: 20210720
